FAERS Safety Report 25739335 (Version 1)
Quarter: 2025Q3

REPORT INFORMATION
  Report Type: Spontaneous
  Country: US (occurrence: US)
  Receive Date: 20250829
  Receipt Date: 20250829
  Transmission Date: 20251020
  Serious: No
  Sender: GERON CORP
  Company Number: US-GERON CORPORATION-US-GER-25-000176

PATIENT
  Sex: Male

DRUGS (1)
  1. RYTELO [Suspect]
     Active Substance: IMETELSTAT SODIUM
     Indication: Product used for unknown indication
     Route: 042

REACTIONS (5)
  - Pyrexia [Recovered/Resolved]
  - Chills [Unknown]
  - Arthralgia [Unknown]
  - Myalgia [Unknown]
  - Joint swelling [Unknown]
